FAERS Safety Report 9699595 (Version 1)
Quarter: 2013Q4

REPORT INFORMATION
  Report Type: Spontaneous
  Country: US (occurrence: US)
  Receive Date: 20131120
  Receipt Date: 20131120
  Transmission Date: 20140711
  Serious: No
  Sender: FDA-Public Use
  Company Number: US-TEVA-372705USA

PATIENT
  Age: 38 Year
  Sex: Female
  Weight: 84.9 kg

DRUGS (9)
  1. PARAGARD 380A [Suspect]
     Indication: CONTRACEPTION
     Route: 015
     Dates: start: 20120919, end: 20121114
  2. MACROBID [Concomitant]
  3. VALIUM [Concomitant]
     Indication: PANIC ATTACK
  4. VALIUM [Concomitant]
     Indication: ANXIETY
  5. HEPARIN [Concomitant]
     Indication: DEEP VEIN THROMBOSIS
  6. HEPARIN [Concomitant]
     Indication: PULMONARY EMBOLISM
  7. ABILIFY [Concomitant]
  8. ESCITALOPRAM [Concomitant]
     Indication: ANXIETY
  9. ESCITALOPRAM [Concomitant]
     Indication: PANIC ATTACK

REACTIONS (1)
  - Device expulsion [Recovered/Resolved]
